FAERS Safety Report 10174016 (Version 2)
Quarter: 2014Q3

REPORT INFORMATION
  Report Type: Report from Study
  Country: DK (occurrence: DK)
  Receive Date: 20140515
  Receipt Date: 20140805
  Transmission Date: 20150326
  Serious: Yes (Hospitalization)
  Sender: FDA-Public Use
  Company Number: DK-ROCHE-1397287

PATIENT
  Age: 61 Year
  Sex: Male

DRUGS (7)
  1. ATARAX [Concomitant]
     Active Substance: HYDROXYZINE\HYDROXYZINE HYDROCHLORIDE
  2. INTERFERON ALFA-2A [Suspect]
     Active Substance: INTERFERON ALFA-2A
     Dosage: DOSE: 3X10^6 IU
     Route: 065
     Dates: start: 20140630, end: 20140709
  3. BEVACIZUMAB [Suspect]
     Active Substance: BEVACIZUMAB
     Route: 042
     Dates: start: 20140630, end: 20140630
  4. INTERLEUKIN-2 [Suspect]
     Active Substance: ALDESLEUKIN
     Indication: METASTATIC RENAL CELL CARCINOMA
     Dosage: DOSE: 4.3 X 10^6 IU
     Route: 058
     Dates: start: 20140210, end: 20140708
  5. BEVACIZUMAB [Suspect]
     Active Substance: BEVACIZUMAB
     Indication: METASTATIC RENAL CELL CARCINOMA
     Route: 042
     Dates: start: 20140210
  6. INTERFERON ALFA-2A [Suspect]
     Active Substance: INTERFERON ALFA-2A
     Indication: METASTATIC RENAL CELL CARCINOMA
     Dosage: DOSE: 3X10^6 IU
     Route: 058
     Dates: start: 20140205
  7. INTERLEUKIN-2 [Suspect]
     Active Substance: ALDESLEUKIN
     Dosage: DOSE:8.6X10^6 IU
     Route: 058
     Dates: start: 20140630, end: 20140709

REACTIONS (2)
  - Dehydration [Recovered/Resolved]
  - Contrast media reaction [Recovered/Resolved]

NARRATIVE: CASE EVENT DATE: 20140428
